FAERS Safety Report 6342899 (Version 2)
Quarter: 2014Q1

REPORT INFORMATION
  Report Type: Spontaneous
  Country: US (occurrence: US)
  Receive Date: 20070626
  Receipt Date: 20140225
  Transmission Date: 20141002
  Serious: Yes (Hospitalization, Other)
  Sender: FDA-Public Use
  Company Number: US-AMGEN-US230135

PATIENT
  Age: 61 Year
  Sex: Male

DRUGS (4)
  1. ENBREL [Suspect]
     Indication: PSORIASIS
     Dosage: 50 MG, QWK
     Route: 065
     Dates: start: 2003
  2. ENBREL [Suspect]
     Indication: RHEUMATOID ARTHRITIS
  3. ENBREL [Suspect]
     Indication: PSORIATIC ARTHROPATHY
  4. NEXAVAR [Suspect]
     Indication: PRODUCT USED FOR UNKNOWN INDICATION
     Dosage: UNK
     Route: 065

REACTIONS (12)
  - Benign neoplasm of thyroid gland [Recovered/Resolved]
  - Hepatitis [Recovered/Resolved]
  - Hepatic neoplasm [Recovered/Resolved]
  - Hepatic cirrhosis [Unknown]
  - Splenomegaly [Unknown]
  - Confusional state [Unknown]
  - Hepatic encephalopathy [Unknown]
  - Platelet count decreased [Unknown]
  - Burning sensation [Recovered/Resolved]
  - Gait disturbance [Recovered/Resolved]
  - Blood pressure increased [Recovered/Resolved]
  - Erythema [Recovered/Resolved]
